FAERS Safety Report 7054034-1 (Version None)
Quarter: 2010Q4

REPORT INFORMATION
  Report Type: 
  Country: None (occurrence: None)
  Receive Date: 20101014
  Receipt Date: 20101005
  Transmission Date: 20110411
  Serious: Yes (Hospitalization)
  Sender: FDA-Public Use
  Company Number: 720868

PATIENT
  Age: 77 Year
  Sex: Female

DRUGS (1)
  1. PACLITAXEL [Suspect]
     Indication: PRODUCT USED FOR UNKNOWN INDICATION
     Dosage: 120 MG ACCORDING TO CYCLE, INTRAVENOUS (NOT OTHERWISE SPECIFIED)
     Route: 042
     Dates: start: 20100909

REACTIONS (3)
  - BLOOD PRESSURE INCREASED [None]
  - CHILLS [None]
  - CYANOSIS [None]
